FAERS Safety Report 15574150 (Version 1)
Quarter: 2018Q4

REPORT INFORMATION
  Report Type: Spontaneous
  Country: US (occurrence: US)
  Receive Date: 20181101
  Receipt Date: 20181101
  Transmission Date: 20190205
  Serious: Yes (Other)
  Sender: FDA-Public Use
  Company Number: US-TEVA-2018-US-969233

PATIENT
  Age: 80 Year
  Sex: Male

DRUGS (1)
  1. PROAIR HFA [Suspect]
     Active Substance: ALBUTEROL SULFATE
     Dosage: 2 PUFFS 2 TO 4 TIMES A DAY AS NEEDED

REACTIONS (7)
  - Transient ischaemic attack [Unknown]
  - Eye haemorrhage [Unknown]
  - Cerebrovascular accident [Recovered/Resolved]
  - Heart rate irregular [Unknown]
  - Haemoptysis [Unknown]
  - Drug effect decreased [Unknown]
  - Productive cough [Unknown]
